FAERS Safety Report 4343052-X (Version None)
Quarter: 2004Q2

REPORT INFORMATION
  Report Type: 
  Country: None (occurrence: None)
  Receive Date: 20040416
  Receipt Date: 20040405
  Transmission Date: 20050107
  Serious: Yes (Other)
  Sender: FDA-Public Use
  Company Number: US-JNJFOC-20040302135

PATIENT
  Age: 29 Year
  Sex: Male
  Weight: 87.9978 kg

DRUGS (1)
  1. REMICADE [Suspect]
     Indication: CROHN'S DISEASE
     Dosage: 5 MG/KG, 1 IN 8 WEEK, INTRVENOUS
     Route: 042
     Dates: start: 20031209

REACTIONS (2)
  - ABDOMINAL OPERATION [None]
  - APPENDICECTOMY [None]
